FAERS Safety Report 5321464-5 (Version None)
Quarter: 2007Q2

REPORT INFORMATION
  Report Type: 
  Country: None (occurrence: None)
  Receive Date: 20070510
  Receipt Date: 20070503
  Transmission Date: 20071010
  Serious: Yes (Other)
  Sender: FDA-Public Use
  Company Number: B0469781A

PATIENT
  Age: 63 Year
  Sex: Male

DRUGS (9)
  1. ZOFRAN [Suspect]
     Indication: NAUSEA
     Route: 042
     Dates: start: 20061214, end: 20070403
  2. DEXAMETHASONE 0.5MG TAB [Concomitant]
     Indication: COLON CANCER
     Dosage: 10MG CYCLIC
     Route: 042
     Dates: start: 20061214
  3. CYTOSTATICS [Concomitant]
     Indication: DRUG USE FOR UNKNOWN INDICATION
     Route: 065
  4. OXALIPLATIN [Concomitant]
     Indication: COLON CANCER
     Dosage: 215MG CYCLIC
     Route: 042
     Dates: start: 20061214
  5. BEVACIZUMAB [Concomitant]
     Indication: COLON CANCER
     Dosage: 450MG CYCLIC
     Route: 042
     Dates: start: 20061214
  6. CAPECITABINE [Concomitant]
     Indication: COLON CANCER
     Dosage: 1450MG TWICE PER DAY
     Route: 048
     Dates: start: 20061214
  7. MAGNESIUM SULFATE [Concomitant]
     Indication: COLON CANCER
     Dosage: 1G CYCLIC
     Route: 042
     Dates: start: 20061214
  8. MAGNESIUM CHLORIDE [Concomitant]
     Indication: COLON CANCER
     Dosage: 21G CYCLIC
     Route: 042
     Dates: start: 20061214
  9. TROPISETRON [Concomitant]
     Indication: DRUG USE FOR UNKNOWN INDICATION
     Route: 065

REACTIONS (6)
  - ERYTHEMA [None]
  - INJECTION SITE ERYTHEMA [None]
  - INJECTION SITE PAPULE [None]
  - RASH [None]
  - SCAR [None]
  - VASCULITIS [None]
